FAERS Safety Report 24687857 (Version 1)
Quarter: 2024Q4

REPORT INFORMATION
  Report Type: Spontaneous
  Country: US (occurrence: US)
  Receive Date: 20241202
  Receipt Date: 20241202
  Transmission Date: 20250115
  Serious: No
  Sender: SANOFI AVENTIS
  Company Number: US-SA-2024SA348506

PATIENT
  Age: 7 Year
  Sex: Male

DRUGS (1)
  1. DUPIXENT [Suspect]
     Active Substance: DUPILUMAB
     Dosage: 300 MG, Q4W
     Route: 058
     Dates: start: 202409

REACTIONS (6)
  - Eczema [Not Recovered/Not Resolved]
  - Pruritus [Not Recovered/Not Resolved]
  - Eczema asteatotic [Not Recovered/Not Resolved]
  - Skin lesion [Not Recovered/Not Resolved]
  - Sleep disorder due to a general medical condition [Unknown]
  - Blister [Unknown]

NARRATIVE: CASE EVENT DATE: 20240101
